FAERS Safety Report 5192946-4 (Version None)
Quarter: 2006Q4

REPORT INFORMATION
  Report Type: 
  Country: None (occurrence: None)
  Receive Date: 20061228
  Receipt Date: 20060313
  Transmission Date: 20070319
  Serious: No
  Sender: FDA-Public Use
  Company Number: US-GLAXOSMITHKLINE-A0597353A

PATIENT
  Age: 55 Year
  Sex: Female

DRUGS (4)
  1. FLONASE [Suspect]
     Dosage: 2SPR TWICE PER DAY
     Route: 045
  2. FOSAMAX [Concomitant]
  3. VIVELLE [Concomitant]
  4. PROGESTERONE [Concomitant]

REACTIONS (1)
  - LABORATORY TEST ABNORMAL [None]
